FAERS Safety Report 9634204 (Version 1)
Quarter: 2013Q4

REPORT INFORMATION
  Report Type: Spontaneous
  Country: US (occurrence: US)
  Receive Date: 20131021
  Receipt Date: 20131021
  Transmission Date: 20140711
  Serious: Yes (Other)
  Sender: FDA-Public Use
  Company Number: US-PFIZER INC-2013300418

PATIENT
  Age: 67 Year
  Sex: Female
  Weight: 73.02 kg

DRUGS (6)
  1. SKELAXIN [Suspect]
     Indication: MUSCLE SPASMS
     Dosage: 800 MG, AS NEEDED
     Route: 048
  2. ARAVA [Suspect]
     Indication: POLYARTHRITIS
     Dosage: 20 MG, UNK
  3. BUSPAR [Concomitant]
     Dosage: 5 MG, 3X/DAY
  4. COZAAR [Concomitant]
     Indication: HYPERTENSION
     Dosage: UNK
  5. MS CONTIN [Concomitant]
     Indication: ARTHRALGIA
     Dosage: 15 MG, 3X/DAY
  6. WELLBUTRIN [Concomitant]
     Dosage: 75 MG

REACTIONS (2)
  - Polyarthritis [Not Recovered/Not Resolved]
  - Hepatic enzyme increased [Unknown]
